FAERS Safety Report 6334637-X (Version None)
Quarter: 2009Q3

REPORT INFORMATION
  Report Type: 
  Country: None (occurrence: None)
  Receive Date: 20090827
  Receipt Date: 20090824
  Transmission Date: 20100115
  Serious: Yes (Death)
  Sender: FDA-Public Use
  Company Number: 2009009930

PATIENT
  Age: 45 Year
  Sex: Female

DRUGS (2)
  1. FENTORA [Suspect]
     Dosage: BUCCAL
     Route: 002
  2. FENTANYL [Concomitant]

REACTIONS (1)
  - DEATH [None]
